FAERS Safety Report 9417220 (Version 1)
Quarter: 2013Q3

REPORT INFORMATION
  Report Type: Spontaneous
  Country: GB (occurrence: GB)
  Receive Date: 20130719
  Receipt Date: 20130719
  Transmission Date: 20140515
  Serious: Yes (Other)
  Sender: FDA-Public Use
  Company Number: AUR-APL-2013-05952

PATIENT
  Age: 54 Year
  Sex: Female

DRUGS (1)
  1. MIRTAZAPINE (MIRTAZAPINE) [Suspect]
     Indication: DEPRESSION
     Route: 048

REACTIONS (3)
  - Schizophrenia [None]
  - Sleep paralysis [None]
  - Hypnagogic hallucination [None]
